FAERS Safety Report 8822326 (Version 1)
Quarter: 2012Q4

REPORT INFORMATION
  Report Type: 
  Country: IT (occurrence: IT)
  Receive Date: 20121003
  Receipt Date: 20121003
  Transmission Date: 20130627
  Serious: Yes (Life-Threatening, Hospitalization, Other)
  Sender: FDA-Public Use
  Company Number: IT-BAYER-2012-058443

PATIENT
  Age: 48 Year
  Sex: Male

DRUGS (4)
  1. SORAFENIB (RAF KINASE INHIBITOR) [Suspect]
     Indication: METASTATIC RENAL CELL CARCINOMA
     Dosage: Daily dose 800 mg
     Dates: start: 20091124
  2. SORAFENIB (RAF KINASE INHIBITOR) [Suspect]
     Indication: METASTATIC RENAL CELL CARCINOMA
     Dosage: Daily dose 400 mg
     Dates: start: 20100524, end: 20100620
  3. BIFRIZIDE [Concomitant]
     Indication: HYPERTENSION
     Dosage: 15 mg, QD
     Route: 048
     Dates: start: 20100330, end: 20100426
  4. EUTIROX [Concomitant]
     Indication: HYPOTHYROIDISM
     Dosage: Daily dose 50 ?g
     Route: 048
     Dates: start: 20080728, end: 20100426

REACTIONS (1)
  - Acute myocardial infarction [Recovered/Resolved with Sequelae]
